FAERS Safety Report 8224766-8 (Version None)
Quarter: 2012Q1

REPORT INFORMATION
  Report Type: 
  Country: None (occurrence: None)
  Receive Date: 20120321
  Receipt Date: 20120316
  Transmission Date: 20120608
  Serious: Yes (Hospitalization)
  Sender: FDA-Public Use
  Company Number: PHEH2012US006116

PATIENT
  Sex: Male

DRUGS (1)
  1. AFINITOR [Suspect]
     Indication: RENAL CANCER
     Dosage: 10 MG, DAILY
     Route: 048
     Dates: start: 20120207, end: 20120314

REACTIONS (6)
  - AGEUSIA [None]
  - NAUSEA [None]
  - FULL BLOOD COUNT DECREASED [None]
  - BLOOD COUNT ABNORMAL [None]
  - DERMATITIS CONTACT [None]
  - DECREASED APPETITE [None]
